FAERS Safety Report 4818796-3 (Version None)
Quarter: 2005Q4

REPORT INFORMATION
  Report Type: 
  Country: None (occurrence: None)
  Receive Date: 20051101
  Receipt Date: 20051020
  Transmission Date: 20060501
  Serious: Yes (Hospitalization, Other)
  Sender: FDA-Public Use
  Company Number: 2005146446

PATIENT
  Age: 43 Year
  Sex: Male
  Weight: 116.5744 kg

DRUGS (11)
  1. IRINOTECAN HCL [Suspect]
     Indication: COLORECTAL CANCER METASTATIC
     Dates: start: 20050101
  2. PROTONIX [Concomitant]
  3. LEXAPRO [Concomitant]
  4. MULTIVITAMIN [Concomitant]
  5. CALCIUM (CALCIUM) [Concomitant]
  6. XANAX [Concomitant]
  7. LISINOPRIL [Concomitant]
  8. COMPAZINE [Concomitant]
  9. AVASTIN [Concomitant]
  10. FLUOROURACIL [Concomitant]
  11. LEUCOVORIN CALCIUM [Concomitant]

REACTIONS (4)
  - ARRHYTHMIA [None]
  - FEELING HOT [None]
  - HEART RATE IRREGULAR [None]
  - HYPERHIDROSIS [None]
